FAERS Safety Report 18331667 (Version 2)
Quarter: 2020Q4

REPORT INFORMATION
  Report Type: Report from Study
  Country: CO (occurrence: CO)
  Receive Date: 20200930
  Receipt Date: 20201130
  Transmission Date: 20210113
  Serious: Yes (Other)
  Sender: FDA-Public Use
  Company Number: CO-JNJFOC-20200701808

PATIENT
  Age: 62 Year
  Sex: Female
  Weight: 69 kg

DRUGS (2)
  1. STELARA [Suspect]
     Active Substance: USTEKINUMAB
     Indication: PSORIASIS
     Route: 058
     Dates: start: 20200406
  2. STELARA [Suspect]
     Active Substance: USTEKINUMAB
     Route: 058
     Dates: start: 20200106

REACTIONS (3)
  - Headache [Not Recovered/Not Resolved]
  - Gastroenteritis [Recovering/Resolving]
  - Urine odour abnormal [Not Recovered/Not Resolved]

NARRATIVE: CASE EVENT DATE: 202005
